FAERS Safety Report 9207229 (Version 1)
Quarter: 2013Q2

REPORT INFORMATION
  Report Type: Spontaneous
  Country: US (occurrence: None)
  Receive Date: 20130402
  Receipt Date: 20130402
  Transmission Date: 20140414
  Serious: Yes (Hospitalization, Other)
  Sender: FDA-Public Use
  Company Number: None

PATIENT
  Age: 83 Year
  Sex: Male
  Weight: 78.2 kg

DRUGS (2)
  1. HEPARIN [Suspect]
     Indication: VASCULAR OPERATION
     Route: 042
     Dates: start: 20130216, end: 20130325
  2. HEPARIN [Suspect]
     Indication: CORONARY ARTERY BYPASS
     Route: 042
     Dates: start: 20130216, end: 20130325

REACTIONS (3)
  - Heparin-induced thrombocytopenia [None]
  - Thrombosis [None]
  - Ischaemia [None]
